FAERS Safety Report 7569312-7 (Version None)
Quarter: 2011Q2

REPORT INFORMATION
  Report Type: 
  Country: None (occurrence: None)
  Receive Date: 20110623
  Receipt Date: 20110616
  Transmission Date: 20111010
  Serious: Yes (Death, Hospitalization, Other)
  Sender: FDA-Public Use
  Company Number: US-CELGENEUS-163-21880-11062407

PATIENT
  Age: 77 Year
  Sex: Female

DRUGS (15)
  1. PROCRIT [Concomitant]
     Route: 065
  2. HYDRALAZINE HCL [Concomitant]
     Route: 065
  3. BUMETANIDE [Concomitant]
     Route: 065
  4. REVLIMID [Suspect]
     Dosage: 5 MILLIGRAM
     Route: 048
     Dates: start: 20110301, end: 20110401
  5. ASPIRIN [Concomitant]
     Route: 065
  6. ALBUTEROL SULFATE AUTOHALER [Concomitant]
     Route: 065
  7. LACTULOSE [Concomitant]
     Route: 065
  8. OMEPRAZOLE [Concomitant]
     Route: 065
  9. ISORDIL [Concomitant]
     Route: 065
  10. DEXAMETHASONE [Concomitant]
     Indication: MULTIPLE MYELOMA
     Route: 065
     Dates: start: 20101001, end: 20101201
  11. DEXAMETHASONE [Concomitant]
     Route: 065
     Dates: start: 20110301, end: 20110401
  12. METOLAZONE [Concomitant]
     Route: 065
  13. CARVEDILOL [Concomitant]
     Route: 065
  14. REVLIMID [Suspect]
     Indication: MULTIPLE MYELOMA
     Dosage: 5 MILLIGRAM
     Route: 048
     Dates: start: 20101001, end: 20101201
  15. ROCALTROL [Concomitant]
     Route: 065

REACTIONS (6)
  - VOMITING [None]
  - DEATH [None]
  - OESOPHAGITIS [None]
  - NAUSEA [None]
  - RENAL IMPAIRMENT [None]
  - GENERALISED OEDEMA [None]
